FAERS Safety Report 8092910-1 (Version None)
Quarter: 2012Q1

REPORT INFORMATION
  Report Type: 
  Country: None (occurrence: None)
  Receive Date: 20120128
  Receipt Date: 20110805
  Transmission Date: 20120608
  Serious: No
  Sender: FDA-Public Use
  Company Number: US-ABBOTT-11P-163-0844228-00

PATIENT
  Sex: Female
  Weight: 50.848 kg

DRUGS (3)
  1. HUMIRA [Suspect]
     Indication: PSORIATIC ARTHROPATHY
  2. HUMIRA [Suspect]
     Indication: PSORIASIS
  3. METFORMIN HCL [Concomitant]
     Indication: DIABETES MELLITUS

REACTIONS (17)
  - HYPERSOMNIA [None]
  - THIRST [None]
  - ABDOMINAL PAIN UPPER [None]
  - BACK PAIN [None]
  - PAIN IN EXTREMITY [None]
  - ARTHRALGIA [None]
  - PAIN [None]
  - MOBILITY DECREASED [None]
  - BALANCE DISORDER [None]
  - PSORIASIS [None]
  - LIQUID PRODUCT PHYSICAL ISSUE [None]
  - PARAESTHESIA [None]
  - MUSCULOSKELETAL PAIN [None]
  - PSORIATIC ARTHROPATHY [None]
  - NAUSEA [None]
  - VOMITING [None]
  - HEADACHE [None]
